FAERS Safety Report 8443818-0 (Version None)
Quarter: 2012Q2

REPORT INFORMATION
  Report Type: 
  Country: None (occurrence: None)
  Receive Date: 20120618
  Receipt Date: 20120612
  Transmission Date: 20120825
  Serious: Yes (Other)
  Sender: FDA-Public Use
  Company Number: BR-SANOFI-AVENTIS-2011SA017530

PATIENT
  Sex: Female
  Weight: 65 kg

DRUGS (9)
  1. PROGESTERONE [Concomitant]
     Indication: PREGNANCY
     Route: 048
     Dates: start: 20110302
  2. VITAMIN B COMPLEX CAP [Concomitant]
     Route: 048
     Dates: start: 20110101
  3. ESTROFEM [Concomitant]
     Indication: PREGNANCY
     Route: 048
     Dates: start: 20110302
  4. VITAMIN B COMPLEX CAP [Concomitant]
     Indication: VITAMIN SUPPLEMENTATION
     Dosage: DOSE:800 MILLIUNIT(S)
     Route: 048
     Dates: start: 20110101
  5. ASCORBIC ACID [Concomitant]
     Indication: VITAMIN SUPPLEMENTATION
     Dosage: DOSE:1000 MILLIUNIT(S)
     Route: 048
     Dates: start: 20110101
  6. FOLIC ACID [Concomitant]
     Indication: PREGNANCY
     Route: 048
     Dates: start: 20100801, end: 20110101
  7. METICORTEN [Concomitant]
     Route: 048
     Dates: start: 20110217
  8. LOVAZA [Concomitant]
  9. ENOXAPARIN SODIUM [Suspect]
     Route: 058
     Dates: start: 20110201

REACTIONS (2)
  - GESTATIONAL DIABETES [None]
  - MATERNAL EXPOSURE DURING PREGNANCY [None]
